FAERS Safety Report 17812276 (Version 1)
Quarter: 2020Q2

REPORT INFORMATION
  Report Type: Spontaneous
  Country: GB (occurrence: GB)
  Receive Date: 20200521
  Receipt Date: 20200521
  Transmission Date: 20200714
  Serious: Yes (Other)
  Sender: FDA-Public Use
  Company Number: GB-SAMSUNG BIOEPIS-SB-2020-17086

PATIENT
  Age: 35 Year
  Sex: Female
  Weight: 54.7 kg

DRUGS (1)
  1. ADALIMUMAB [Suspect]
     Active Substance: ADALIMUMAB
     Indication: PSORIATIC ARTHROPATHY
     Dosage: 40 (UNIT UNSPECIFIED)
     Route: 003
     Dates: start: 20170202

REACTIONS (4)
  - Product use issue [Unknown]
  - Cutaneous leishmaniasis [Unknown]
  - Inflammation [Unknown]
  - Skin ulcer [Unknown]

NARRATIVE: CASE EVENT DATE: 20190802
